FAERS Safety Report 4630837-5 (Version None)
Quarter: 2005Q1

REPORT INFORMATION
  Report Type: 
  Country: None (occurrence: None)
  Receive Date: 20050331
  Receipt Date: 20050331
  Transmission Date: 20050727
  Serious: No
  Sender: FDA-Public Use
  Company Number: None

PATIENT
  Sex: Male
  Weight: 57 kg

DRUGS (1)
  1. TRANSPLANT TISSUE [Suspect]
     Dates: start: 20040807

REACTIONS (8)
  - CHILLS [None]
  - DYSPNOEA [None]
  - GRAFT VERSUS HOST DISEASE [None]
  - HYPOXIA [None]
  - PNEUMONIA [None]
  - PRODUCTIVE COUGH [None]
  - PSYCHOTIC DISORDER [None]
  - PYREXIA [None]
